FAERS Safety Report 8589590 (Version 12)
Quarter: 2014Q2

REPORT INFORMATION
  Report Type: Spontaneous
  Country: US (occurrence: US)
  Receive Date: 20120531
  Receipt Date: 20140406
  Transmission Date: 20141212
  Serious: Yes (Hospitalization, Disabling, Other)
  Sender: FDA-Public Use
  Company Number: US-MERCK-1205USA04490

PATIENT
  Sex: Female
  Weight: 96.15 kg

DRUGS (10)
  1. FOSAMAX [Suspect]
     Indication: OSTEOPOROSIS
     Dosage: 70 MG, UNK
     Route: 048
     Dates: start: 20031001, end: 20060420
  2. FOSAMAX [Suspect]
     Indication: OSTEOPENIA
     Dosage: 70 MG, QM
     Route: 048
  3. FOSAMAX PLUS D [Suspect]
     Indication: OSTEOPOROSIS
     Dosage: 70 MG, UNK
     Route: 048
     Dates: start: 20060508
  4. CELEBREX [Concomitant]
     Indication: PAIN
     Dosage: UNK
  5. CELEBREX [Concomitant]
     Indication: TENDERNESS
  6. CELEBREX [Concomitant]
     Indication: SWELLING
  7. CELEBREX [Concomitant]
     Indication: MUSCULOSKELETAL STIFFNESS
  8. NAPROXEN [Concomitant]
     Indication: PAIN
     Dosage: UNK
  9. NAPROXEN [Concomitant]
     Indication: SWELLING
  10. CYANOCOBALAMIN [Concomitant]
     Dosage: UNK, QM
     Dates: start: 1998, end: 20120910

REACTIONS (47)
  - Femoral neck fracture [Not Recovered/Not Resolved]
  - Femur fracture [Unknown]
  - Fracture nonunion [Unknown]
  - Open reduction of fracture [Unknown]
  - Osteoporosis [Not Recovered/Not Resolved]
  - Stress fracture [Not Recovered/Not Resolved]
  - Femur fracture [Not Recovered/Not Resolved]
  - Femur fracture [Unknown]
  - Hernia repair [Unknown]
  - Low turnover osteopathy [Not Recovered/Not Resolved]
  - Abdominal hernia repair [Unknown]
  - Upper limb fracture [Unknown]
  - Cholecystectomy [Unknown]
  - Arthritis [Unknown]
  - Fungal infection [Unknown]
  - Bursitis [Unknown]
  - Infection [Unknown]
  - Hyperaemia [Unknown]
  - Fall [Unknown]
  - Seroma [Unknown]
  - Oral surgery [Unknown]
  - Tooth extraction [Unknown]
  - Steroid therapy [Unknown]
  - Intervertebral disc degeneration [Unknown]
  - Spinal osteoarthritis [Unknown]
  - Ligament sprain [Unknown]
  - Ligament sprain [Unknown]
  - Contusion [Unknown]
  - Muscle strain [Unknown]
  - Muscle strain [Unknown]
  - Spinal osteoarthritis [Unknown]
  - Road traffic accident [Unknown]
  - Joint injury [Unknown]
  - Sternal fracture [Unknown]
  - Rib fracture [Unknown]
  - Calcium deficiency [Unknown]
  - Vitamin D deficiency [Unknown]
  - Bone metabolism disorder [Unknown]
  - Hernia repair [Unknown]
  - Abdominal hernia [Unknown]
  - Bursitis [Unknown]
  - Tendon disorder [Unknown]
  - Muscle rupture [Unknown]
  - Inappropriate schedule of drug administration [Unknown]
  - Tonsillectomy [Unknown]
  - Back pain [Not Recovered/Not Resolved]
  - Arthralgia [Unknown]
